FAERS Safety Report 16444365 (Version 2)
Quarter: 2019Q3

REPORT INFORMATION
  Report Type: Other
  Country: MX (occurrence: MX)
  Receive Date: 20190618
  Receipt Date: 20190715
  Transmission Date: 20191004
  Serious: Yes (Death, Hospitalization)
  Sender: FDA-Public Use
  Company Number: MX-FDC LIMITED-2069300

PATIENT
  Sex: Female
  Weight: 1.27 kg

DRUGS (4)
  1. VANCOMYCIN [Suspect]
     Active Substance: VANCOMYCIN
     Route: 065
  2. CIPROFLOXACIN. [Suspect]
     Active Substance: CIPROFLOXACIN
     Indication: PRODUCT USED FOR UNKNOWN INDICATION
     Route: 065
  3. AMIKACIN. [Suspect]
     Active Substance: AMIKACIN
     Route: 065
  4. MEROPENEM. [Suspect]
     Active Substance: MEROPENEM
     Route: 065

REACTIONS (2)
  - Death [Fatal]
  - Fungaemia [Unknown]

NARRATIVE: CASE EVENT DATE: 201004
